FAERS Safety Report 8143999-2 (Version None)
Quarter: 2012Q1

REPORT INFORMATION
  Report Type: 
  Country: None (occurrence: None)
  Receive Date: 20120217
  Receipt Date: 20120217
  Transmission Date: 20120608
  Serious: Yes (Hospitalization)
  Sender: FDA-Public Use
  Company Number: None

PATIENT
  Age: 70 Year
  Sex: Female
  Weight: 65.77 kg

DRUGS (1)
  1. MACROBID [Suspect]
     Indication: URINARY TRACT INFECTION

REACTIONS (15)
  - COUGH [None]
  - HEADACHE [None]
  - NECK PAIN [None]
  - DIZZINESS [None]
  - PYREXIA [None]
  - NAUSEA [None]
  - ARTHRALGIA [None]
  - URINARY INCONTINENCE [None]
  - INFLUENZA [None]
  - ASTHENIA [None]
  - DISORIENTATION [None]
  - VOMITING [None]
  - MUSCULOSKELETAL PAIN [None]
  - CHILLS [None]
  - PAIN IN EXTREMITY [None]
